FAERS Safety Report 16300833 (Version 1)
Quarter: 2019Q2

REPORT INFORMATION
  Report Type: Spontaneous
  Country: US (occurrence: US)
  Receive Date: 20190510
  Receipt Date: 20190510
  Transmission Date: 20190711
  Serious: Yes (Hospitalization, Other)
  Sender: FDA-Public Use
  Company Number: US-SUNOVION-2019SUN001941

PATIENT
  Sex: Female
  Weight: 52.15 kg

DRUGS (7)
  1. GABAPENTIN ABC [Concomitant]
     Active Substance: GABAPENTIN
     Indication: AFFECTIVE DISORDER
     Dosage: 300 MG, TID
     Route: 048
  2. LATUDA [Suspect]
     Active Substance: LURASIDONE HYDROCHLORIDE
     Indication: BIPOLAR II DISORDER
     Dosage: 80 MG, QD
     Route: 048
  3. LATUDA [Suspect]
     Active Substance: LURASIDONE HYDROCHLORIDE
     Indication: DEPRESSION
     Dosage: 40 MG, QD
     Route: 048
     Dates: end: 20190503
  4. ZOLOFT [Suspect]
     Active Substance: SERTRALINE HYDROCHLORIDE
     Dosage: UNK
     Route: 065
     Dates: end: 2018
  5. LATUDA [Suspect]
     Active Substance: LURASIDONE HYDROCHLORIDE
     Dosage: 20 MG, SINGLE (HALF 40 MG TABLET)
     Route: 048
     Dates: start: 20190504, end: 20190504
  6. ZOLOFT [Suspect]
     Active Substance: SERTRALINE HYDROCHLORIDE
     Dosage: UNK
     Route: 065
  7. LAMICTAL ODT [Suspect]
     Active Substance: LAMOTRIGINE
     Dosage: 400 MG
     Route: 065

REACTIONS (6)
  - Depression [Not Recovered/Not Resolved]
  - Rash [Recovering/Resolving]
  - Substance abuse [Unknown]
  - Wrong technique in product usage process [Unknown]
  - Off label use [Unknown]
  - Pruritus [Recovering/Resolving]
